FAERS Safety Report 11798254 (Version 1)
Quarter: 2015Q4

REPORT INFORMATION
  Report Type: Other
  Country: ES (occurrence: ES)
  Receive Date: 20151203
  Receipt Date: 20151203
  Transmission Date: 20160305
  Serious: Yes (Hospitalization)
  Sender: FDA-Public Use
  Company Number: ES-ENDO PHARMACEUTICALS INC-2015-004482

PATIENT
  Age: 66 Year
  Sex: Male

DRUGS (3)
  1. AMOXICILLIN CAPSULES [Suspect]
     Active Substance: AMOXICILLIN
     Route: 048
  2. AMOXICILLIN CAPSULES [Suspect]
     Active Substance: AMOXICILLIN
     Route: 048
  3. AMOXICILLIN CAPSULES [Suspect]
     Active Substance: AMOXICILLIN
     Indication: ORAL PAIN
     Route: 048

REACTIONS (1)
  - Meningitis aseptic [Recovered/Resolved]
